FAERS Safety Report 4768672-X (Version None)
Quarter: 2005Q3

REPORT INFORMATION
  Report Type: 
  Country: None (occurrence: None)
  Receive Date: 20050914
  Receipt Date: 20050902
  Transmission Date: 20060218
  Serious: Yes (Other)
  Sender: FDA-Public Use
  Company Number: US-JNJFOC-20050902446

PATIENT
  Sex: Female

DRUGS (2)
  1. IMODIUM A-D [Suspect]
  2. IMODIUM A-D [Suspect]
     Dosage: 6-10 MG DAILY

REACTIONS (4)
  - DRUG DEPENDENCE [None]
  - INTENTIONAL MISUSE [None]
  - REBOUND EFFECT [None]
  - SOMNOLENCE [None]
